FAERS Safety Report 18365039 (Version 2)
Quarter: 2020Q4

REPORT INFORMATION
  Report Type: Spontaneous
  Country: US (occurrence: US)
  Receive Date: 20201009
  Receipt Date: 20201016
  Transmission Date: 20210114
  Serious: Yes (Life-Threatening, Hospitalization)
  Sender: FDA-Public Use
  Company Number: US-ACCORD-204223

PATIENT
  Age: 83 Year
  Sex: Female

DRUGS (4)
  1. PRAMIPEXOLE/PRAMIPEXOLE DIHYDROCHLORIDE [Concomitant]
     Active Substance: PRAMIPEXOLE DIHYDROCHLORIDE
     Indication: PARKINSON^S DISEASE
     Dosage: 1.5 MG PER MOUTH 3 TIMES DAILY
     Route: 048
  2. AMANTADINE. [Concomitant]
     Active Substance: AMANTADINE HYDROCHLORIDE
     Indication: PARKINSON^S DISEASE
     Dosage: 100 MG PER MOUTH DAILY
     Route: 048
  3. CARBIDOPA/LEVODOPA [Suspect]
     Active Substance: CARBIDOPA\LEVODOPA
     Indication: PARKINSON^S DISEASE
     Dosage: 1 TABLET OF CARBIDOPA/LEVODOPA 25/100 MG CONTROLLED RELEASE. 7 TIMES PER DAY (2,100 MG/D)
     Route: 048
  4. CARBIDOPA/LEVODOPA [Suspect]
     Active Substance: CARBIDOPA\LEVODOPA
     Indication: PARKINSON^S DISEASE
     Dosage: 2 TABLETS OF CARBIDOPA/LEVODOPA 25/100 MG IMMEDIATE RELEASE

REACTIONS (1)
  - Vitamin B6 deficiency [Recovering/Resolving]
